FAERS Safety Report 7596431-1 (Version None)
Quarter: 2011Q3

REPORT INFORMATION
  Report Type: 
  Country: None (occurrence: None)
  Receive Date: 20110707
  Receipt Date: 20110701
  Transmission Date: 20111222
  Serious: Yes (Other)
  Sender: FDA-Public Use
  Company Number: SE-BRISTOL-MYERS SQUIBB COMPANY-15872120

PATIENT

DRUGS (5)
  1. DIMETHICONE [Concomitant]
     Dosage: FOR SEVERAL YEARS
  2. FORMOTEROL FUMARATE [Concomitant]
     Dosage: FOR SEVERAL YEARS
  3. QUESTRAN [Suspect]
     Dosage: STARTED  ABOUT 5 YEARS AGO
  4. PULMICORT [Concomitant]
     Dosage: FOR SEVERAL YEARS
  5. ACETAMINOPHEN [Concomitant]
     Dosage: FOR SEVERAL YEARS

REACTIONS (1)
  - SWELLING FACE [None]
